FAERS Safety Report 9257300 (Version 2)
Quarter: 2013Q2

REPORT INFORMATION
  Report Type: Report from Study
  Country: US (occurrence: US)
  Receive Date: 20130426
  Receipt Date: 20130627
  Transmission Date: 20140414
  Serious: Yes (Death)
  Sender: FDA-Public Use
  Company Number: PHEH2013US009193

PATIENT
  Sex: Male

DRUGS (7)
  1. AFINITOR [Suspect]
     Indication: RENAL CELL CARCINOMA
     Dosage: 10 MG, DAILY
     Route: 048
     Dates: start: 201301, end: 20130122
  2. REGLAN [Concomitant]
     Dosage: 5 MG, UNK
  3. PREDNISONE [Concomitant]
     Dosage: 20 MG, UNK
  4. AMBIEN [Concomitant]
     Dosage: 10 MG, UNK
  5. MORPHINE SULPHATE [Concomitant]
     Dosage: 30 MG, UNK
  6. VYTORIN [Concomitant]
  7. TYLENOL 8 HOUR [Concomitant]
     Dosage: 650 MG, UNK

REACTIONS (2)
  - Renal cell carcinoma [Fatal]
  - Malignant neoplasm progression [Fatal]
